FAERS Safety Report 4704319-6 (Version None)
Quarter: 2005Q2

REPORT INFORMATION
  Report Type: 
  Country: None (occurrence: None)
  Receive Date: 20050629
  Receipt Date: 20050621
  Transmission Date: 20051028
  Serious: Yes (Other)
  Sender: FDA-Public Use
  Company Number: EM2005-0182

PATIENT
  Age: 67 Year
  Sex: Male
  Weight: 78.9 kg

DRUGS (4)
  1. PROLEUKIN [Suspect]
     Indication: MALIGNANT MELANOMA
     Dosage: 18 MIU/M2, QD, CONT IV INFUS
     Route: 042
     Dates: start: 20031013, end: 20031016
  2. PROLEUKIN [Suspect]
     Dosage: 18 MIU/ M2, IV BOLUS
     Route: 040
  3. FAMOTIDINE [Suspect]
     Dosage: 20 MG, BID, INTRAVENOUS
     Route: 042
  4. FAMOTIDINE [Suspect]
     Dosage: 20 MG, ONCE, INTRAVENOUS
     Route: 042

REACTIONS (1)
  - ATRIAL FIBRILLATION [None]
